FAERS Safety Report 18138295 (Version 3)
Quarter: 2020Q3

REPORT INFORMATION
  Report Type: Spontaneous
  Country: BR (occurrence: BR)
  Receive Date: 20200812
  Receipt Date: 20200918
  Transmission Date: 20201103
  Serious: Yes (Other)
  Sender: FDA-Public Use
  Company Number: BR-B.I. PHARMACEUTICALS,INC./RIDGEFIELD-2020-SS-040879

PATIENT
  Age: 65 Year
  Sex: Male
  Weight: 72 kg

DRUGS (3)
  1. PRADAXA [Suspect]
     Active Substance: DABIGATRAN ETEXILATE MESYLATE
     Indication: THROMBOSIS PROPHYLAXIS
     Route: 048
  2. PRADAXA [Suspect]
     Active Substance: DABIGATRAN ETEXILATE MESYLATE
     Indication: ATRIAL FIBRILLATION
     Route: 048
     Dates: start: 20200602, end: 20200608
  3. PROLOPA [Concomitant]
     Active Substance: BENSERAZIDE\LEVODOPA
     Indication: PRODUCT USED FOR UNKNOWN INDICATION
     Dosage: 7.5 TABLETS IN A DAY , 100/25

REACTIONS (6)
  - Nausea [Recovered/Resolved]
  - Paralysis [Recovered/Resolved]
  - Migraine [Recovered/Resolved]
  - Migraine [Recovered/Resolved]
  - Nausea [Recovered/Resolved]
  - Paralysis [Recovered/Resolved]

NARRATIVE: CASE EVENT DATE: 202006
